FAERS Safety Report 8178743-6 (Version None)
Quarter: 2012Q1

REPORT INFORMATION
  Report Type: 
  Country: None (occurrence: None)
  Receive Date: 20120301
  Receipt Date: 20120301
  Transmission Date: 20120608
  Serious: No
  Sender: FDA-Public Use
  Company Number: None

PATIENT
  Age: 72 Year
  Sex: Female
  Weight: 69 kg

DRUGS (1)
  1. PRADAXA [Suspect]
     Dosage: 150 MG

REACTIONS (3)
  - WHEEZING [None]
  - DYSPEPSIA [None]
  - ABDOMINAL PAIN [None]
